FAERS Safety Report 13120582 (Version 1)
Quarter: 2017Q1

REPORT INFORMATION
  Report Type: Spontaneous
  Country: US (occurrence: US)
  Receive Date: 20170113
  Receipt Date: 20170113
  Transmission Date: 20170428
  Serious: No
  Sender: FDA-Public Use
  Company Number: None

PATIENT
  Sex: Female

DRUGS (1)
  1. SIROLIMUS GREENSTONE [Suspect]
     Active Substance: SIROLIMUS
     Indication: GASTROENTERITIS
     Route: 048
     Dates: start: 20160817, end: 201701

REACTIONS (1)
  - Stevens-Johnson syndrome [None]
